FAERS Safety Report 14583661 (Version 3)
Quarter: 2018Q1

REPORT INFORMATION
  Report Type: Spontaneous
  Country: GR (occurrence: GR)
  Receive Date: 20180228
  Receipt Date: 20180307
  Transmission Date: 20180509
  Serious: Yes (Life-Threatening, Hospitalization, Other)
  Sender: FDA-Public Use
  Company Number: GR-JNJFOC-20180236274

PATIENT
  Age: 65 Year
  Sex: Female

DRUGS (3)
  1. AZATHIOPRINE SODIUM. [Suspect]
     Active Substance: AZATHIOPRINE SODIUM
     Indication: PRODUCT USED FOR UNKNOWN INDICATION
     Route: 065
  2. INFLIXIMAB, RECOMBINANT [Suspect]
     Active Substance: INFLIXIMAB
     Indication: PRODUCT USED FOR UNKNOWN INDICATION
     Route: 042
  3. YERVOY [Suspect]
     Active Substance: IPILIMUMAB
     Indication: METASTATIC MALIGNANT MELANOMA
     Route: 065

REACTIONS (6)
  - Haemodynamic instability [Recovered/Resolved]
  - Diarrhoea [Unknown]
  - Haemorrhagic disorder [Unknown]
  - Haemorrhage [Recovered/Resolved]
  - Drug ineffective [Recovered/Resolved]
  - Enteritis [Unknown]
